FAERS Safety Report 6831127-2 (Version None)
Quarter: 2010Q3

REPORT INFORMATION
  Report Type: 
  Country: None (occurrence: None)
  Receive Date: 20100709
  Receipt Date: 20100709
  Transmission Date: 20110219
  Serious: No
  Sender: FDA-Public Use
  Company Number: None

PATIENT
  Sex: Female
  Weight: 83.0083 kg

DRUGS (1)
  1. GLEEVEC [Suspect]
     Indication: SOFT TISSUE NEOPLASM
     Dosage: 400 MG DAILY PO
     Route: 048
     Dates: start: 20100312, end: 20100708

REACTIONS (3)
  - ALOPECIA [None]
  - PERIORBITAL OEDEMA [None]
  - PRURITUS [None]
